FAERS Safety Report 13800421 (Version 2)
Quarter: 2017Q4

REPORT INFORMATION
  Report Type: Spontaneous
  Country: JP (occurrence: JP)
  Receive Date: 20170727
  Receipt Date: 20171005
  Transmission Date: 20180320
  Serious: Yes (Other)
  Sender: FDA-Public Use
  Company Number: JP-009507513-1707JPN001312J

PATIENT
  Age: 64 Year
  Sex: Male

DRUGS (6)
  1. INDINAVIR [Concomitant]
     Active Substance: INDINAVIR
     Dosage: UNK
     Route: 065
     Dates: start: 2002, end: 20081215
  2. NORVIR [Concomitant]
     Active Substance: RITONAVIR
     Dosage: UNK
     Route: 065
     Dates: start: 2008, end: 2013
  3. EPZICOM [Concomitant]
     Active Substance: ABACAVIR SULFATE\LAMIVUDINE
     Dosage: UNK
     Route: 065
     Dates: start: 2008, end: 2013
  4. REYATAZ [Concomitant]
     Active Substance: ATAZANAVIR SULFATE
     Dosage: UNK
     Route: 065
     Dates: start: 2008, end: 2013
  5. EPIVIR [Concomitant]
     Active Substance: LAMIVUDINE
     Dosage: UNK
     Route: 065
     Dates: start: 2002, end: 20081215
  6. ISENTRESS [Suspect]
     Active Substance: RALTEGRAVIR POTASSIUM
     Dosage: UNK
     Route: 048
     Dates: start: 20130603

REACTIONS (1)
  - Calculus urinary [Recovered/Resolved]

NARRATIVE: CASE EVENT DATE: 20151224
